FAERS Safety Report 5571969-7 (Version None)
Quarter: 2007Q4

REPORT INFORMATION
  Report Type: 
  Country: None (occurrence: None)
  Receive Date: 20071221
  Receipt Date: 20071128
  Transmission Date: 20080405
  Serious: No
  Sender: FDA-Public Use
  Company Number: US-BOEHRINGER INGELHEIM PHARMACEUTICALS, INC.-2007-BP-25259BP

PATIENT
  Age: 50 Year
  Sex: Female
  Weight: 56 kg

DRUGS (3)
  1. MIRAPEX [Suspect]
     Indication: RESTLESS LEGS SYNDROME
     Route: 048
     Dates: start: 20071026, end: 20071029
  2. ACTONEL [Concomitant]
     Dates: start: 20050101
  3. RESTASIS [Concomitant]
     Route: 031
     Dates: start: 20070913

REACTIONS (1)
  - CHEST DISCOMFORT [None]
